FAERS Safety Report 14429711 (Version 3)
Quarter: 2018Q2

REPORT INFORMATION
  Report Type: Spontaneous
  Country: US (occurrence: US)
  Receive Date: 20180123
  Receipt Date: 20180426
  Transmission Date: 20180711
  Serious: No
  Sender: FDA-Public Use
  Company Number: US-009507513-1801USA007016

PATIENT
  Age: 68 Year
  Sex: Female

DRUGS (33)
  1. POTASSIUM (UNSPECIFIED) [Concomitant]
     Active Substance: POTASSIUM
     Dosage: UNK
     Dates: start: 20160808
  2. POTASSIUM CHLORIDE. [Concomitant]
     Active Substance: POTASSIUM CHLORIDE
     Dosage: UNK
     Dates: start: 20170508, end: 20180404
  3. CEPHALEXIN. [Concomitant]
     Active Substance: CEPHALEXIN
     Dosage: UNK
     Dates: start: 20170623, end: 20170902
  4. ERYTHROMYCIN. [Concomitant]
     Active Substance: ERYTHROMYCIN
     Dosage: UNK
     Dates: start: 20180126, end: 20180209
  5. RESTASIS [Concomitant]
     Active Substance: CYCLOSPORINE
     Dosage: FORMULATION: EMULSION
     Dates: start: 20170606, end: 20180328
  6. INTRON A [Suspect]
     Active Substance: INTERFERON ALFA-2B
     Dosage: 0.35 ML, Q3D
     Route: 058
     Dates: start: 20150728
  7. DOXYCYCLINE HYCLATE. [Concomitant]
     Active Substance: DOXYCYCLINE HYCLATE
     Dosage: UNK
     Dates: start: 20170623, end: 20170707
  8. OMEGA-3 MARINE TRIGLYCERIDES [Concomitant]
     Active Substance: FISH OIL
     Dosage: UNK
     Dates: start: 20160808
  9. PROMETHAZINE [Concomitant]
     Active Substance: PROMETHAZINE\PROMETHAZINE HYDROCHLORIDE
     Dosage: UNK
     Dates: start: 20170623, end: 20170723
  10. HYDROCHLOROT [Concomitant]
     Active Substance: HYDROCHLOROTHIAZIDE
     Dosage: UNK
     Dates: start: 20180224
  11. CLINDAMYCIN. [Concomitant]
     Active Substance: CLINDAMYCIN
     Dosage: UNK
     Dates: start: 20180325, end: 20180404
  12. INTRON A [Suspect]
     Active Substance: INTERFERON ALFA-2B
     Indication: MACULAR DEGENERATION
     Dosage: STRENGTH: 18 MILLION IU (6 MILLION IU/ML); DOSE: 0.35 ML (2.1 MILLION IU), Q3D
     Route: 058
     Dates: start: 20150728
  13. ERYTHROMYCIN. [Concomitant]
     Active Substance: ERYTHROMYCIN
     Dosage: UNK
     Dates: start: 20170814, end: 20171006
  14. DORZOLAMIDE HYDROCHLORIDE (+) TIMOLOL MALEATE [Concomitant]
     Active Substance: DORZOLAMIDE HYDROCHLORIDE\TIMOLOL MALEATE
     Dosage: STRENGTH: 22.3-6.6 (UNITS NOT PROVIDED)
     Dates: start: 20180130
  15. CLINDAMYCIN. [Concomitant]
     Active Substance: CLINDAMYCIN
     Dosage: UNK
     Dates: start: 20160302, end: 20180312
  16. HYDROCHLOROT [Concomitant]
     Active Substance: HYDROCHLOROTHIAZIDE
     Dosage: UNK
     Dates: start: 20170407
  17. PRINIVIL [Concomitant]
     Active Substance: LISINOPRIL
     Dosage: UNK
     Dates: start: 20160808
  18. ESCITALOPRAM [Concomitant]
     Active Substance: ESCITALOPRAM OXALATE
     Dosage: UNK
     Dates: start: 20170622, end: 20170822
  19. POTASSIUM CHLORIDE. [Concomitant]
     Active Substance: POTASSIUM CHLORIDE
     Dosage: UNK
     Dates: start: 20170425, end: 20170624
  20. PRINIVIL [Concomitant]
     Active Substance: LISINOPRIL
     Dosage: UNK
     Dates: start: 20170425, end: 20170722
  21. COQ [Concomitant]
     Dosage: UNK
     Dates: start: 20160808
  22. ONDANSETRON [Concomitant]
     Active Substance: ONDANSETRON
     Dosage: UNK
     Dates: start: 20170923, end: 20170927
  23. PRINIVIL [Concomitant]
     Active Substance: LISINOPRIL
     Dosage: UNK
     Dates: start: 20170622
  24. ESCITALOPRAM [Concomitant]
     Active Substance: ESCITALOPRAM OXALATE
     Dosage: UNK
     Dates: start: 20170720
  25. POTASSIUM CHLORIDE. [Concomitant]
     Active Substance: POTASSIUM CHLORIDE
     Dosage: UNK
     Dates: start: 20170502, end: 20170701
  26. DORZOLAMIDE HYDROCHLORIDE (+) TIMOLOL MALEATE [Concomitant]
     Active Substance: DORZOLAMIDE HYDROCHLORIDE\TIMOLOL MALEATE
     Dosage: STRENGTH: 22.3-6.6 (UNITS NOT PROVIDED)
     Dates: start: 20170814, end: 20180210
  27. HYDROCHLOROT [Concomitant]
     Active Substance: HYDROCHLOROTHIAZIDE
     Dosage: UNK
     Dates: start: 20170721, end: 20180116
  28. ACETAMINOPHEN (+) OXYCODONE HYDROCHLORIDE [Concomitant]
     Active Substance: ACETAMINOPHEN\OXYCODONE HYDROCHLORIDE
     Dosage: UNK
     Dates: start: 20170823, end: 20170929
  29. LIDOCAINE. [Concomitant]
     Active Substance: LIDOCAINE
     Dosage: UNK
     Dates: start: 20180317
  30. VITAMINS (UNSPECIFIED) [Concomitant]
     Active Substance: VITAMINS
     Dosage: UNK
     Dates: start: 20160808
  31. HYDROCHLOROT [Concomitant]
     Active Substance: HYDROCHLOROTHIAZIDE
     Dosage: UNK
     Dates: start: 20170328, end: 20170822
  32. HYDROCHLOROT [Concomitant]
     Active Substance: HYDROCHLOROTHIAZIDE
     Dosage: UNK
     Dates: start: 20171215, end: 20180314
  33. DORZOLAMIDE HYDROCHLORIDE (+) TIMOLOL MALEATE [Concomitant]
     Active Substance: DORZOLAMIDE HYDROCHLORIDE\TIMOLOL MALEATE
     Dosage: STRENGTH: 22.3-6.6 (UNITS NOT PROVIDED)
     Dates: start: 20170605, end: 20171202

REACTIONS (2)
  - Product use in unapproved indication [Unknown]
  - Influenza like illness [Unknown]

NARRATIVE: CASE EVENT DATE: 20150728
